FAERS Safety Report 6092162-8 (Version None)
Quarter: 2009Q1

REPORT INFORMATION
  Report Type: 
  Country: None (occurrence: None)
  Receive Date: 20090225
  Receipt Date: 20090213
  Transmission Date: 20090719
  Serious: Yes (Other)
  Sender: FDA-Public Use
  Company Number: JP-PFIZER INC-2008100668

PATIENT

DRUGS (7)
  1. SUNITINIB MALATE [Suspect]
     Indication: RENAL CELL CARCINOMA
     Dosage: 50 MG, 1X/DAY
     Route: 048
     Dates: start: 20080909
  2. NORVASC [Concomitant]
     Route: 048
  3. CODEINE PHOSPHATE [Concomitant]
     Route: 048
  4. MAG-LAX [Concomitant]
     Route: 048
  5. LOXONIN [Concomitant]
     Route: 048
  6. MUCOSTA [Concomitant]
     Route: 048
  7. DIOVANE [Concomitant]
     Route: 048
     Dates: start: 20080916

REACTIONS (2)
  - CEREBRAL INFARCTION [None]
  - HAEMOTHORAX [None]
